FAERS Safety Report 20447728 (Version 1)
Quarter: 2022Q1

REPORT INFORMATION
  Report Type: Spontaneous
  Country: US (occurrence: US)
  Receive Date: 20220209
  Receipt Date: 20220209
  Transmission Date: 20220423
  Serious: No
  Sender: FDA-Public Use
  Company Number: US-TOLMAR, INC.-22US032645

PATIENT
  Age: 29 Year
  Sex: Male

DRUGS (1)
  1. KETOCONAZOLE [Suspect]
     Active Substance: KETOCONAZOLE
     Indication: Hair growth abnormal
     Dosage: UNK
     Route: 003

REACTIONS (3)
  - Scab [Recovered/Resolved]
  - Off label use [Unknown]
  - Skin irritation [Recovered/Resolved]
